FAERS Safety Report 15371987 (Version 1)
Quarter: 2018Q3

REPORT INFORMATION
  Report Type: Report from Study
  Country: US (occurrence: US)
  Receive Date: 20180911
  Receipt Date: 20180911
  Transmission Date: 20181010
  Serious: Yes (Death, Life-Threatening, Other)
  Sender: FDA-Public Use
  Company Number: US-TEVA-2018-US-952595

PATIENT
  Age: 30 Year
  Sex: Male

DRUGS (3)
  1. DIPHENHYDRAMINE. [Suspect]
     Active Substance: DIPHENHYDRAMINE
     Route: 065
  2. CITALOPRAM [Suspect]
     Active Substance: CITALOPRAM HYDROBROMIDE
     Route: 065
  3. DEXTROMETHORPHAN [Suspect]
     Active Substance: DEXTROMETHORPHAN
     Route: 065

REACTIONS (15)
  - Pneumonia aspiration [Unknown]
  - Hyperreflexia [Unknown]
  - Rhabdomyolysis [Unknown]
  - Toxicity to various agents [Fatal]
  - Coagulopathy [Unknown]
  - Necrosis [Unknown]
  - Tachycardia [Unknown]
  - Depressed level of consciousness [Unknown]
  - Hepatotoxicity [Unknown]
  - Tremor [Unknown]
  - Metabolic acidosis [Unknown]
  - Leukocytosis [Unknown]
  - Coma [Unknown]
  - Blister [Unknown]
  - Acute kidney injury [Unknown]
